FAERS Safety Report 17502494 (Version 1)
Quarter: 2020Q1

REPORT INFORMATION
  Report Type: Spontaneous
  Country: US (occurrence: US)
  Receive Date: 20200305
  Receipt Date: 20200305
  Transmission Date: 20200409
  Serious: Yes (Death, Hospitalization)
  Sender: FDA-Public Use
  Company Number: US-TEVA-2020-US-1193397

PATIENT
  Age: 35 Year
  Sex: Female

DRUGS (2)
  1. MORPHINE [Suspect]
     Active Substance: MORPHINE
     Route: 048
  2. FENTANYL. [Suspect]
     Active Substance: FENTANYL
     Indication: PRODUCT USED FOR UNKNOWN INDICATION
     Route: 048

REACTIONS (9)
  - Muscle rigidity [Fatal]
  - Posturing [Fatal]
  - Toxicity to various agents [Fatal]
  - Acute myocardial infarction [Fatal]
  - Cardiac arrest [Fatal]
  - Atrioventricular block first degree [Fatal]
  - Torsade de pointes [Fatal]
  - Pulseless electrical activity [Fatal]
  - Pneumonia [Fatal]
